FAERS Safety Report 8110470-3 (Version None)
Quarter: 2012Q1

REPORT INFORMATION
  Report Type: 
  Country: None (occurrence: None)
  Receive Date: 20120202
  Receipt Date: 20120124
  Transmission Date: 20120608
  Serious: Yes (Hospitalization)
  Sender: FDA-Public Use
  Company Number: US-BAXTER-2012BH002340

PATIENT
  Sex: Male

DRUGS (4)
  1. DIANEAL [Suspect]
     Indication: PERITONEAL DIALYSIS
     Route: 033
     Dates: end: 20120101
  2. DIANEAL [Suspect]
     Route: 033
     Dates: start: 20120124
  3. DIANEAL [Suspect]
     Indication: PERITONEAL DIALYSIS
     Route: 033
     Dates: end: 20120101
  4. DIANEAL [Suspect]
     Route: 033
     Dates: start: 20120124

REACTIONS (3)
  - ASTHENIA [None]
  - ALTERED STATE OF CONSCIOUSNESS [None]
  - ABASIA [None]
